FAERS Safety Report 26067156 (Version 1)
Quarter: 2025Q4

REPORT INFORMATION
  Report Type: Spontaneous
  Country: EU (occurrence: EU)
  Receive Date: 20251119
  Receipt Date: 20251119
  Transmission Date: 20260117
  Serious: Yes (Other)
  Sender: GLAXOSMITHKLINE
  Company Number: None

PATIENT
  Age: 72 Year
  Sex: Male
  Weight: 48 kg

DRUGS (1)
  1. MOMELOTINIB [Suspect]
     Active Substance: MOMELOTINIB
     Indication: Myelofibrosis
     Dosage: 200 MG
     Route: 065

REACTIONS (1)
  - Pancreatic carcinoma [Recovering/Resolving]

NARRATIVE: CASE EVENT DATE: 20251021
